FAERS Safety Report 20850795 (Version 2)
Quarter: 2022Q2

REPORT INFORMATION
  Report Type: Spontaneous
  Country: CN (occurrence: CN)
  Receive Date: 20220519
  Receipt Date: 20220531
  Transmission Date: 20220721
  Serious: Yes (Hospitalization, Other)
  Sender: FDA-Public Use
  Company Number: CN-MLMSERVICE-20220509-3548079-1

PATIENT
  Age: 28 Year
  Sex: Male

DRUGS (3)
  1. METHYLPREDNISOLONE [Suspect]
     Active Substance: METHYLPREDNISOLONE
     Indication: Viral myocarditis
     Dosage: UNK
  2. CEFMENOXIME [Concomitant]
     Active Substance: CEFMENOXIME
     Indication: Viral myocarditis
     Dosage: UNK
  3. ACYCLOVIR [Concomitant]
     Active Substance: ACYCLOVIR
     Indication: Viral myocarditis
     Dosage: UNK

REACTIONS (2)
  - Klebsiella infection [Recovered/Resolved]
  - Streptococcal infection [Recovered/Resolved]
